FAERS Safety Report 14690576 (Version 1)
Quarter: 2018Q1

REPORT INFORMATION
  Report Type: Spontaneous
  Country: US (occurrence: US)
  Receive Date: 20180328
  Receipt Date: 20180328
  Transmission Date: 20180509
  Serious: No
  Sender: FDA-Public Use
  Company Number: US-TARO-2017TAR00575

PATIENT
  Sex: Female

DRUGS (3)
  1. FLUOROURACIL TOPICAL CREAM USP 5% [Suspect]
     Active Substance: FLUOROURACIL
     Indication: NEOPLASM MALIGNANT
     Dosage: UNK UNK, 2X/DAY
     Route: 061
     Dates: start: 2017, end: 2017
  2. FLUOROURACIL (OCEAN SIDE PHARMACEUTICALS) [Suspect]
     Active Substance: FLUOROURACIL
     Indication: NEOPLASM MALIGNANT
     Dosage: UNK UNK, 2X/DAY
     Route: 061
  3. FLUOROURACIL. [Suspect]
     Active Substance: FLUOROURACIL
     Dosage: UNK, 2X/DAY

REACTIONS (1)
  - Scab [Recovered/Resolved]
